FAERS Safety Report 6730204-4 (Version None)
Quarter: 2010Q2

REPORT INFORMATION
  Report Type: 
  Country: None (occurrence: None)
  Receive Date: 20100513
  Receipt Date: 20100505
  Transmission Date: 20101027
  Serious: Yes (Other)
  Sender: FDA-Public Use
  Company Number: 8053106

PATIENT
  Sex: Female
  Weight: 53 kg

DRUGS (3)
  1. KEPPRA [Suspect]
     Indication: CONVULSION
     Dosage: (500 MG TID ORAL)
     Route: 048
     Dates: start: 20030101
  2. LEVETIRACETAM [Suspect]
     Dates: start: 20090101
  3. PRENATAL VITAMINS /01549301/ [Concomitant]

REACTIONS (2)
  - HEPATOSPLENOMEGALY [None]
  - HYDRONEPHROSIS [None]
